FAERS Safety Report 11113632 (Version 1)
Quarter: 2015Q2

REPORT INFORMATION
  Report Type: Spontaneous
  Country: US (occurrence: US)
  Receive Date: 20150514
  Receipt Date: 20150514
  Transmission Date: 20150821
  Serious: No
  Sender: FDA-Public Use
  Company Number: US-AMGEN-USASP2015045908

PATIENT
  Age: 54 Year
  Sex: Female

DRUGS (3)
  1. HYDROCHLOROTHIAZIDE. [Concomitant]
     Active Substance: HYDROCHLOROTHIAZIDE
     Dosage: 12.5 MG, UNK
  2. ENBREL [Suspect]
     Active Substance: ETANERCEPT
     Indication: PSORIATIC ARTHROPATHY
     Dosage: 50 MG, QWK
     Route: 058
     Dates: start: 201503
  3. SPRIX [Concomitant]
     Active Substance: KETOROLAC TROMETHAMINE
     Dosage: 15.75 UNK, UNK

REACTIONS (7)
  - Migraine [Recovered/Resolved]
  - Haematocrit decreased [Unknown]
  - Asthenia [Unknown]
  - Abdominal discomfort [Unknown]
  - Infusion site infection [Recovered/Resolved]
  - Fatigue [Unknown]
  - Red blood cell count decreased [Unknown]

NARRATIVE: CASE EVENT DATE: 2015
